FAERS Safety Report 23837101 (Version 1)
Quarter: 2024Q2

REPORT INFORMATION
  Report Type: Spontaneous
  Country: CN (occurrence: CN)
  Receive Date: 20240509
  Receipt Date: 20240509
  Transmission Date: 20240717
  Serious: Yes (Hospitalization, Other)
  Sender: FDA-Public Use
  Company Number: CN-SA-SAC20240501001884

PATIENT
  Age: 93 Year
  Sex: Female
  Weight: 70 kg

DRUGS (3)
  1. INSULIN GLARGINE [Suspect]
     Active Substance: INSULIN GLARGINE
     Indication: Type 2 diabetes mellitus
     Dosage: 24 IU, QD
     Route: 058
     Dates: start: 20240118, end: 20240119
  2. INSULIN ASPART [Suspect]
     Active Substance: INSULIN ASPART
     Indication: Type 2 diabetes mellitus
     Dosage: 19 IU, QD
     Route: 058
     Dates: start: 20240118, end: 20240119
  3. INSULIN ASPART [Suspect]
     Active Substance: INSULIN ASPART
     Dosage: 22 IU BEFORE BREAKFAST AND 8 IU BEFORE DINNER
     Route: 058
     Dates: start: 20240129

REACTIONS (9)
  - Hypoglycaemia [Recovered/Resolved]
  - Dry mouth [Recovered/Resolved]
  - Polydipsia [Recovered/Resolved]
  - Hyperhidrosis [Recovered/Resolved]
  - Polyuria [Recovered/Resolved]
  - Loss of consciousness [Recovered/Resolved]
  - Unresponsive to stimuli [Recovered/Resolved]
  - Skin warm [Recovered/Resolved]
  - Blood pressure systolic increased [Recovering/Resolving]

NARRATIVE: CASE EVENT DATE: 20240118
